FAERS Safety Report 8178257-3 (Version None)
Quarter: 2012Q1

REPORT INFORMATION
  Report Type: 
  Country: None (occurrence: None)
  Receive Date: 20120126
  Receipt Date: 20111222
  Transmission Date: 20120608
  Serious: Yes (Hospitalization, Other)
  Sender: FDA-Public Use
  Company Number: PHEH2011US012394

PATIENT
  Age: 65 Year
  Sex: Female

DRUGS (8)
  1. ETOPOSIDE [Suspect]
     Indication: CHEMOTHERAPY
     Dates: end: 20110601
  2. HYDROCHLOROTHIAZIDE [Concomitant]
  3. ATENOLOL [Concomitant]
  4. CARBOPLATIN [Suspect]
     Indication: CHEMOTHERAPY
     Dates: end: 20110601
  5. AFINITOR [Suspect]
     Indication: RENAL CELL CARCINOMA
     Dosage: 10 MG, QD
  6. AFINITOR [Suspect]
     Indication: PRIMITIVE NEUROECTODERMAL TUMOUR
     Dosage: 10 MG, QD
  7. ATACAND [Concomitant]
  8. CYMBALTA [Concomitant]

REACTIONS (2)
  - PNEUMONIA [None]
  - DIARRHOEA [None]
